FAERS Safety Report 17479281 (Version 1)
Quarter: 2020Q1

REPORT INFORMATION
  Report Type: Spontaneous
  Country: US (occurrence: US)
  Receive Date: 20200228
  Receipt Date: 20200228
  Transmission Date: 20200409
  Serious: No
  Sender: FDA-Public Use
  Company Number: US-PERRIGO-19US009165

PATIENT
  Age: 58 Year
  Sex: Female
  Weight: 65.76 kg

DRUGS (1)
  1. MICONAZOLE NITRATE. [Suspect]
     Active Substance: MICONAZOLE NITRATE
     Indication: VULVOVAGINAL MYCOTIC INFECTION
     Dosage: 200 MG, SINGLE
     Route: 067
     Dates: start: 20190727, end: 20190727

REACTIONS (2)
  - Vulvovaginal pain [Recovering/Resolving]
  - Vulvovaginal burning sensation [Recovering/Resolving]

NARRATIVE: CASE EVENT DATE: 20190727
